FAERS Safety Report 14539208 (Version 1)
Quarter: 2018Q1

REPORT INFORMATION
  Report Type: Spontaneous
  Country: US (occurrence: US)
  Receive Date: 20180214
  Receipt Date: 20180214
  Transmission Date: 20180509
  Serious: No
  Sender: FDA-Public Use
  Company Number: None

PATIENT
  Age: 55 Year
  Sex: Female

DRUGS (2)
  1. IBRANCE [Suspect]
     Active Substance: PALBOCICLIB
     Indication: METASTASES TO BONE
     Dosage: 125MG DAILY FOR 21 DAYS ON, 7 DAYS OFF, PO
     Route: 048
     Dates: start: 20161101
  2. IBRANCE [Suspect]
     Active Substance: PALBOCICLIB
     Indication: BREAST CANCER FEMALE
     Dosage: 125MG DAILY FOR 21 DAYS ON, 7 DAYS OFF, PO
     Route: 048
     Dates: start: 20161101

REACTIONS (2)
  - Wound dehiscence [None]
  - Gingival disorder [None]

NARRATIVE: CASE EVENT DATE: 20180210
